FAERS Safety Report 19008061 (Version 2)
Quarter: 2021Q1

REPORT INFORMATION
  Report Type: Spontaneous
  Country: DE (occurrence: DE)
  Receive Date: 20210315
  Receipt Date: 20210331
  Transmission Date: 20210420
  Serious: Yes (Other)
  Sender: FDA-Public Use
  Company Number: DE-AUROBINDO-AUR-APL-2021-009997

PATIENT
  Sex: Male

DRUGS (2)
  1. RIBAVIRIN FILM COATED TABLETS [Suspect]
     Active Substance: RIBAVIRIN
     Indication: HEPATITIS E
     Dosage: 800 MILLIGRAM
     Route: 048
  2. RIBAVIRIN FILM COATED TABLETS [Suspect]
     Active Substance: RIBAVIRIN
     Dosage: 200 MILLIGRAM (200 UNK)
     Route: 048

REACTIONS (3)
  - Anaemia [Recovered/Resolved]
  - Myelosuppression [Unknown]
  - Product use in unapproved indication [Unknown]
